FAERS Safety Report 14441529 (Version 1)
Quarter: 2018Q1

REPORT INFORMATION
  Report Type: Spontaneous
  Country: RU (occurrence: RU)
  Receive Date: 20180125
  Receipt Date: 20180125
  Transmission Date: 20180509
  Serious: Yes (Hospitalization, Other)
  Sender: FDA-Public Use
  Company Number: RU-ASTRAZENECA-2018SE08949

PATIENT
  Age: 57 Year
  Sex: Male
  Weight: 90 kg

DRUGS (5)
  1. LIPRIMAR [Concomitant]
     Active Substance: ATORVASTATIN CALCIUM
  2. CONCOR [Concomitant]
     Active Substance: BISOPROLOL FUMARATE
  3. CARDIOMAGNYL [Concomitant]
     Active Substance: ASPIRIN\MAGNESIUM HYDROXIDE
  4. BRILINTA [Suspect]
     Active Substance: TICAGRELOR
     Indication: MYOCARDIAL INFARCTION
     Route: 048
     Dates: start: 201608
  5. CARDIKET [Concomitant]
     Active Substance: ISOSORBIDE DINITRATE

REACTIONS (5)
  - Product prescribing issue [Unknown]
  - Device occlusion [Unknown]
  - Product counterfeit [Unknown]
  - Off label use [Not Recovered/Not Resolved]
  - Drug ineffective [Not Recovered/Not Resolved]
